FAERS Safety Report 6260905-6 (Version None)
Quarter: 2009Q3

REPORT INFORMATION
  Report Type: 
  Country: None (occurrence: None)
  Receive Date: 20090709
  Receipt Date: 20070719
  Transmission Date: 20100115
  Serious: Yes (Other)
  Sender: FDA-Public Use
  Company Number: US-ASTRAZENECA-2007UW02036

PATIENT
  Age: 58 Year
  Sex: Female
  Weight: 104.8 kg

DRUGS (25)
  1. SEROQUEL [Suspect]
     Indication: MENTAL DISORDER
     Route: 048
     Dates: start: 20020319, end: 20070201
  2. SEROQUEL [Suspect]
     Indication: DEPRESSION
     Route: 048
     Dates: start: 20020319, end: 20070201
  3. SEROQUEL [Suspect]
     Indication: ANXIETY
     Route: 048
     Dates: start: 20020319, end: 20070201
  4. SEROQUEL [Suspect]
     Dosage: 25 MG - 150 MG
     Route: 048
     Dates: start: 20020522
  5. SEROQUEL [Suspect]
     Dosage: 25 MG - 150 MG
     Route: 048
     Dates: start: 20020522
  6. SEROQUEL [Suspect]
     Dosage: 25 MG - 150 MG
     Route: 048
     Dates: start: 20020522
  7. NASONEX [Concomitant]
  8. PROTONIX [Concomitant]
  9. LISINOPRIL [Concomitant]
  10. SINGULAIR [Concomitant]
  11. VIOXX [Concomitant]
  12. INSULIN [Concomitant]
  13. ALLOPURINOL [Concomitant]
  14. PREVACID [Concomitant]
  15. PAXIL [Concomitant]
  16. ALBUTEROL [Concomitant]
  17. ATIVAN [Concomitant]
  18. PREDNISONE [Concomitant]
  19. VERAPAMIL [Concomitant]
  20. ULTRAM [Concomitant]
  21. LIPITOR [Concomitant]
  22. DIOVAN HCT [Concomitant]
  23. NASACORT AQ [Concomitant]
  24. LEVAQUIN [Concomitant]
  25. FLOVENT [Concomitant]

REACTIONS (11)
  - ABDOMINAL DISCOMFORT [None]
  - ABDOMINAL PAIN [None]
  - BLOOD CHOLESTEROL INCREASED [None]
  - BLOOD TRIGLYCERIDES INCREASED [None]
  - CHEST PAIN [None]
  - DIABETIC NEUROPATHY [None]
  - EYE DISORDER [None]
  - METABOLIC SYNDROME [None]
  - OBESITY [None]
  - TYPE 1 DIABETES MELLITUS [None]
  - WEIGHT INCREASED [None]
